FAERS Safety Report 18958255 (Version 1)
Quarter: 2021Q1

REPORT INFORMATION
  Report Type: Spontaneous
  Country: US (occurrence: US)
  Receive Date: 20210301
  Receipt Date: 20210301
  Transmission Date: 20210420
  Serious: Yes (Death)
  Sender: FDA-Public Use
  Company Number: None

PATIENT
  Sex: Male
  Weight: 72.57 kg

DRUGS (3)
  1. CHLORPROMAZINE. [Concomitant]
     Active Substance: CHLORPROMAZINE
  2. HALOPERIDOL. [Concomitant]
     Active Substance: HALOPERIDOL
  3. SEROSTIM [Suspect]
     Active Substance: SOMATROPIN
     Indication: HIV INFECTION
     Dosage: ?          QUANTITY:28 DF DOSAGE FORM;?
     Route: 058
     Dates: start: 20190715, end: 20201214

REACTIONS (1)
  - Death [None]
